FAERS Safety Report 6652036-8 (Version None)
Quarter: 2010Q1

REPORT INFORMATION
  Report Type: 
  Country: None (occurrence: None)
  Receive Date: 20100325
  Receipt Date: 20100312
  Transmission Date: 20100710
  Serious: Yes (Other)
  Sender: FDA-Public Use
  Company Number: MX-GENENTECH-299542

PATIENT
  Age: 45 Year
  Sex: Female

DRUGS (1)
  1. XOLAIR [Suspect]
     Indication: ASTHMA
     Dosage: UNK
     Route: 058
     Dates: end: 20100201

REACTIONS (4)
  - FACE OEDEMA [None]
  - HYPERSENSITIVITY [None]
  - HYPOTENSION [None]
  - PRURITUS GENERALISED [None]
